FAERS Safety Report 4466221-7 (Version None)
Quarter: 2004Q4

REPORT INFORMATION
  Report Type: 
  Country: None (occurrence: None)
  Receive Date: 20041005
  Receipt Date: 20040927
  Transmission Date: 20050328
  Serious: Yes (Other)
  Sender: FDA-Public Use
  Company Number: US-JNJFOC-20040909215

PATIENT
  Age: 16 Year
  Sex: Female

DRUGS (2)
  1. TOPAMAX [Suspect]
     Indication: BIPOLAR DISORDER
     Route: 049
  2. SEROQUEL [Concomitant]
     Route: 049

REACTIONS (1)
  - BUNDLE BRANCH BLOCK LEFT [None]
